FAERS Safety Report 9014146 (Version 2)
Quarter: 2014Q3

REPORT INFORMATION
  Report Type: Spontaneous
  Country: US (occurrence: US)
  Receive Date: 20130115
  Receipt Date: 20140707
  Transmission Date: 20150326
  Serious: Yes (Other)
  Sender: FDA-Public Use
  Company Number: US-009507513-1301USA005230

PATIENT
  Sex: Female

DRUGS (4)
  1. NUVARING [Suspect]
     Active Substance: ETHINYL ESTRADIOL\ETONOGESTREL
     Indication: DYSMENORRHOEA
  2. NUVARING [Suspect]
     Active Substance: ETHINYL ESTRADIOL\ETONOGESTREL
     Indication: PREMENSTRUAL SYNDROME
  3. EXCEDRIN [Concomitant]
     Active Substance: ACETAMINOPHEN\ASPIRIN\CAFFEINE
     Indication: HEADACHE
     Route: 048
  4. NUVARING [Suspect]
     Active Substance: ETHINYL ESTRADIOL\ETONOGESTREL
     Indication: MENOMETRORRHAGIA
     Dosage: UNK
     Route: 067
     Dates: start: 200711, end: 200712

REACTIONS (15)
  - Brain oedema [Unknown]
  - Incorrect drug administration duration [Unknown]
  - Papilloedema [Unknown]
  - Off label use [Unknown]
  - Headache [Unknown]
  - Ear infection [Unknown]
  - Haemorrhage intracranial [Unknown]
  - Hydrocephalus [Unknown]
  - Embolism venous [Unknown]
  - Diplopia [Unknown]
  - Vision blurred [Unknown]
  - Coagulopathy [Unknown]
  - Vomiting [Unknown]
  - Nausea [Unknown]
  - Neck pain [Unknown]

NARRATIVE: CASE EVENT DATE: 2007
